FAERS Safety Report 6628936-1 (Version None)
Quarter: 2010Q1

REPORT INFORMATION
  Report Type: 
  Country: None (occurrence: None)
  Receive Date: 20100311
  Receipt Date: 20090828
  Transmission Date: 20100710
  Serious: No
  Sender: FDA-Public Use
  Company Number: US-BIOGENIDEC-2009BI024571

PATIENT
  Age: 62 Year
  Sex: Male

DRUGS (2)
  1. AVONEX [Suspect]
     Indication: MULTIPLE SCLEROSIS
     Route: 030
     Dates: start: 20060606
  2. BLOOD PRESSURE MEDICATION (NOS) [Concomitant]
     Indication: HYPERTENSION

REACTIONS (9)
  - ADVERSE DRUG REACTION [None]
  - ARTHRITIS [None]
  - HEADACHE [None]
  - HYPOAESTHESIA [None]
  - INTERVERTEBRAL DISC DISORDER [None]
  - MOOD ALTERED [None]
  - PAIN IN EXTREMITY [None]
  - PERIPHERAL COLDNESS [None]
  - SENSORY DISTURBANCE [None]
